FAERS Safety Report 6742313-4 (Version None)
Quarter: 2010Q2

REPORT INFORMATION
  Report Type: 
  Country: None (occurrence: None)
  Receive Date: 20100524
  Receipt Date: 20100517
  Transmission Date: 20101027
  Serious: Yes (Hospitalization, Other)
  Sender: FDA-Public Use
  Company Number: 2010SP027590

PATIENT
  Age: 52 Year
  Sex: Female

DRUGS (2)
  1. NOXAFIL [Suspect]
     Indication: ANTIFUNGAL PROPHYLAXIS
     Dosage: ; PO
     Route: 048
     Dates: start: 20091116, end: 20091201
  2. ONCOVIN [Suspect]
     Indication: ACUTE LEUKAEMIA
     Dosage: 6 MG; ; IV
     Route: 042
     Dates: start: 20091112, end: 20091126

REACTIONS (9)
  - ABDOMINAL DISTENSION [None]
  - APLASIA [None]
  - BACTERIAL DISEASE CARRIER [None]
  - CONSTIPATION [None]
  - DRUG INTERACTION [None]
  - INTESTINAL DILATATION [None]
  - RESPIRATORY DISORDER [None]
  - THERAPEUTIC AGENT TOXICITY [None]
  - TREATMENT FAILURE [None]
